FAERS Safety Report 19620721 (Version 1)
Quarter: 2021Q3

REPORT INFORMATION
  Report Type: Spontaneous
  Country: BE (occurrence: BE)
  Receive Date: 20210728
  Receipt Date: 20210728
  Transmission Date: 20211014
  Serious: Yes (Life-Threatening, Hospitalization, Other)
  Sender: FDA-Public Use
  Company Number: BE-LUPIN PHARMACEUTICALS INC.-2021-13028

PATIENT
  Age: 77 Year
  Sex: Female

DRUGS (2)
  1. ATEZOLIZUMAB. [Interacting]
     Active Substance: ATEZOLIZUMAB
     Indication: PROGRESSIVE MULTIFOCAL LEUKOENCEPHALOPATHY
     Dosage: 1200 MILLIGRAM, UNK
     Route: 065
  2. METHYLPREDNISOLONE. [Suspect]
     Active Substance: METHYLPREDNISOLONE
     Indication: IMMUNE RECONSTITUTION INFLAMMATORY SYNDROME
     Dosage: UNK (PROLONGED HIGH?DOSE)
     Route: 042

REACTIONS (4)
  - Condition aggravated [Recovering/Resolving]
  - Progressive multifocal leukoencephalopathy [Recovering/Resolving]
  - Drug resistance [Unknown]
  - Drug interaction [Unknown]
